FAERS Safety Report 21255219 (Version 1)
Quarter: 2022Q3

REPORT INFORMATION
  Report Type: Spontaneous
  Country: ES (occurrence: ES)
  Receive Date: 20220825
  Receipt Date: 20220825
  Transmission Date: 20221027
  Serious: Yes (Other)
  Sender: FDA-Public Use
  Company Number: ES-TEVA-2022-ES-2066953

PATIENT
  Age: 25 Year
  Sex: Male

DRUGS (4)
  1. PALIPERIDONE [Suspect]
     Active Substance: PALIPERIDONE
     Indication: Schizophrenia
     Dosage: 12 MILLIGRAM DAILY;
     Route: 048
  2. PALIPERIDONE [Suspect]
     Active Substance: PALIPERIDONE
     Indication: Schizophrenia
     Route: 030
  3. RISPERIDONE [Suspect]
     Active Substance: RISPERIDONE
     Indication: Schizophrenia
     Route: 065
  4. CLOZAPINE [Suspect]
     Active Substance: CLOZAPINE
     Indication: Schizophrenia
     Route: 065

REACTIONS (8)
  - Treatment noncompliance [Unknown]
  - Sexual dysfunction [Unknown]
  - Dysarthria [Unknown]
  - Salivary hypersecretion [Unknown]
  - Somnolence [Unknown]
  - Tremor [Unknown]
  - Muscle rigidity [Unknown]
  - Intentional product misuse [Unknown]
